FAERS Safety Report 11755119 (Version 7)
Quarter: 2016Q1

REPORT INFORMATION
  Report Type: Spontaneous
  Country: US (occurrence: US)
  Receive Date: 20151119
  Receipt Date: 20160118
  Transmission Date: 20160525
  Serious: Yes (Life-Threatening, Hospitalization, Other)
  Sender: FDA-Public Use
  Company Number: US-JNJFOC-20151112991

PATIENT
  Age: 54 Year
  Sex: Female

DRUGS (1)
  1. XARELTO [Suspect]
     Active Substance: RIVAROXABAN
     Indication: PULMONARY EMBOLISM
     Route: 048
     Dates: start: 201502

REACTIONS (4)
  - Tracheostomy [Unknown]
  - Haemorrhage intracranial [Unknown]
  - Hypotonia [Recovering/Resolving]
  - Gastrostomy [Recovered/Resolved]

NARRATIVE: CASE EVENT DATE: 2015
